FAERS Safety Report 23191464 (Version 1)
Quarter: 2023Q4

REPORT INFORMATION
  Report Type: Spontaneous
  Country: US (occurrence: US)
  Receive Date: 20231116
  Receipt Date: 20231116
  Transmission Date: 20240109
  Serious: No
  Sender: FDA-Public Use
  Company Number: US-VERRICA PHARMACEUTICALS INC.-2023VER000005

PATIENT
  Sex: Male

DRUGS (1)
  1. YCANTH [Suspect]
     Active Substance: CANTHARIDIN
     Indication: Product used for unknown indication
     Dosage: UNK, AS DIRECTED
     Route: 061
     Dates: start: 202310

REACTIONS (2)
  - Pain [Recovered/Resolved]
  - Blister [Recovered/Resolved]

NARRATIVE: CASE EVENT DATE: 20231001
